FAERS Safety Report 7427561-2 (Version None)
Quarter: 2011Q2

REPORT INFORMATION
  Report Type: 
  Country: None (occurrence: None)
  Receive Date: 20110420
  Receipt Date: 20110415
  Transmission Date: 20111010
  Serious: Yes (Death)
  Sender: FDA-Public Use
  Company Number: US-ABBOTT-11P-163-0705650-00

PATIENT
  Sex: Female
  Weight: 49.94 kg

DRUGS (1)
  1. HUMIRA [Suspect]
     Indication: RHEUMATOID ARTHRITIS
     Route: 058
     Dates: start: 20060531, end: 20110123

REACTIONS (4)
  - PNEUMONIA [None]
  - RESPIRATORY TRACT INFECTION VIRAL [None]
  - CARDIAC FAILURE [None]
  - MALAISE [None]
